FAERS Safety Report 19287335 (Version 1)
Quarter: 2021Q2

REPORT INFORMATION
  Report Type: Spontaneous
  Country: FR (occurrence: FR)
  Receive Date: 20210522
  Receipt Date: 20210522
  Transmission Date: 20210717
  Serious: Yes (Hospitalization)
  Sender: FDA-Public Use
  Company Number: FR-AUROBINDO-AUR-APL-2015-06646

PATIENT
  Age: 77 Year
  Sex: Male

DRUGS (1)
  1. OMEPRAZOLE. [Suspect]
     Active Substance: OMEPRAZOLE
     Indication: GASTROOESOPHAGEAL REFLUX DISEASE
     Dosage: UNK
     Route: 065

REACTIONS (8)
  - Amnesia [Recovered/Resolved]
  - Hypomagnesaemia [Recovered/Resolved]
  - Hypoparathyroidism [Recovered/Resolved]
  - Toxicity to various agents [Recovered/Resolved]
  - Hypocalcaemia [Recovered/Resolved]
  - Hypokalaemia [Recovered/Resolved]
  - Confusional state [Recovered/Resolved]
  - Seizure [Recovered/Resolved]
